FAERS Safety Report 4635662-7 (Version None)
Quarter: 2005Q2

REPORT INFORMATION
  Report Type: 
  Country: None (occurrence: None)
  Receive Date: 20050413
  Receipt Date: 20050401
  Transmission Date: 20051028
  Serious: Yes (Hospitalization, Other)
  Sender: FDA-Public Use
  Company Number: KII-2005-0015662

PATIENT
  Age: 62 Year
  Sex: Female

DRUGS (11)
  1. MORPHINE SULFATE [Suspect]
     Indication: CANCER PAIN
     Dosage: ORAL
     Route: 048
  2. ACETAMINOPHEN AND HYDROCODONE BITARTRATE [Suspect]
     Dosage: ORAL
     Route: 048
  3. THIAZOLIDINEDIONE [Suspect]
     Dosage: ORAL
     Route: 048
  4. VERAPAMIL [Suspect]
     Dosage: ORAL
     Route: 048
  5. ACE INHIBITOR NOS [Suspect]
     Dosage: ORAL
     Route: 048
  6. HYDROCHLOROTHIAZIDE [Suspect]
     Dosage: ORAL
     Route: 048
  7. THYROID TAB [Suspect]
     Dosage: ORAL
     Route: 048
  8. PROTON PUMP INHIBITOR [Suspect]
     Dosage: ORAL
     Route: 048
  9. ANTIHISTAMINES FOR SYSTEMIC USE [Suspect]
     Dosage: ORAL
     Route: 048
  10. PROPYLENE GLYCOL [Suspect]
     Dosage: ORAL
     Route: 048
  11. BENZODIAZEPINE DERIVATIVES [Suspect]

REACTIONS (10)
  - CONFUSIONAL STATE [None]
  - DEPRESSED LEVEL OF CONSCIOUSNESS [None]
  - HAEMODIALYSIS [None]
  - MIOSIS [None]
  - MULTIPLE DRUG OVERDOSE [None]
  - RENAL FAILURE ACUTE [None]
  - RHABDOMYOLYSIS [None]
  - SINUS TACHYCARDIA [None]
  - SLEEP APNOEA SYNDROME [None]
  - SOMNOLENCE [None]
